FAERS Safety Report 6845415-7 (Version None)
Quarter: 2010Q3

REPORT INFORMATION
  Report Type: 
  Country: None (occurrence: None)
  Receive Date: 20100715
  Receipt Date: 20070822
  Transmission Date: 20110219
  Serious: No
  Sender: FDA-Public Use
  Company Number: US-PFIZER INC-2007070804

PATIENT
  Sex: Female
  Weight: 52.6 kg

DRUGS (2)
  1. CHANTIX [Suspect]
     Dates: start: 20070811, end: 20070818
  2. ANTIBIOTICS [Concomitant]
     Indication: ACNE

REACTIONS (1)
  - RENAL PAIN [None]
